FAERS Safety Report 5108768-6 (Version None)
Quarter: 2006Q3

REPORT INFORMATION
  Report Type: 
  Country: None (occurrence: None)
  Receive Date: 20060914
  Receipt Date: 20060905
  Transmission Date: 20061208
  Serious: Yes (Death)
  Sender: FDA-Public Use
  Company Number: 2006107747

PATIENT
  Age: 90 Year
  Sex: Female

DRUGS (1)
  1. DIPHENHYDRAMINE HCL [Suspect]

REACTIONS (3)
  - CHEST INJURY [None]
  - DRUG LEVEL INCREASED [None]
  - INJURY ASPHYXIATION [None]
